FAERS Safety Report 4588529-7 (Version None)
Quarter: 2005Q1

REPORT INFORMATION
  Report Type: 
  Country: None (occurrence: None)
  Receive Date: 20050222
  Receipt Date: 20050211
  Transmission Date: 20050727
  Serious: Yes (Other)
  Sender: FDA-Public Use
  Company Number: 200511112US

PATIENT
  Sex: Female

DRUGS (1)
  1. KETEK [Suspect]
     Route: 048

REACTIONS (1)
  - HYPOACUSIS [None]
